FAERS Safety Report 25607723 (Version 1)
Quarter: 2025Q3

REPORT INFORMATION
  Report Type: Spontaneous
  Country: VN (occurrence: VN)
  Receive Date: 20250725
  Receipt Date: 20250725
  Transmission Date: 20251021
  Serious: Yes (Other)
  Sender: ROCHE
  Company Number: VN-BoehringerIngelheim-2025-BI-084065

PATIENT
  Age: 13 Month
  Sex: Male
  Weight: 7.8 kg

DRUGS (1)
  1. ALTEPLASE [Suspect]
     Active Substance: ALTEPLASE
     Indication: Hepatic artery thrombosis
     Route: 065

REACTIONS (5)
  - Intra-abdominal haemorrhage [Recovered/Resolved]
  - Off label use [Unknown]
  - Tachycardia [Unknown]
  - Hypotension [Unknown]
  - Haemoglobin decreased [Unknown]
